FAERS Safety Report 16619843 (Version 1)
Quarter: 2019Q3

REPORT INFORMATION
  Report Type: Spontaneous
  Country: US (occurrence: US)
  Receive Date: 20190723
  Receipt Date: 20190723
  Transmission Date: 20191004
  Serious: Yes (Other)
  Sender: FDA-Public Use
  Company Number: US-JNJFOC-20190717563

PATIENT
  Age: 70 Year
  Sex: Male

DRUGS (2)
  1. DOXORUBICIN HYDROCHLORIDE. [Suspect]
     Active Substance: DOXORUBICIN HYDROCHLORIDE
     Indication: NEUROENDOCRINE CARCINOMA OF THE SKIN
     Route: 065
  2. CYCLOPHOSPHAMIDE. [Suspect]
     Active Substance: CYCLOPHOSPHAMIDE
     Indication: NEUROENDOCRINE CARCINOMA OF THE SKIN
     Route: 065

REACTIONS (3)
  - Product use in unapproved indication [Unknown]
  - Neuroendocrine carcinoma of the skin [Unknown]
  - Off label use [Unknown]
